FAERS Safety Report 12225860 (Version 1)
Quarter: 2016Q1

REPORT INFORMATION
  Report Type: Spontaneous
  Country: US (occurrence: US)
  Receive Date: 20160331
  Receipt Date: 20160331
  Transmission Date: 20160526
  Serious: Yes (Hospitalization, Disabling, Other)
  Sender: FDA-Public Use
  Company Number: US-ENDO PHARMACEUTICALS INC.-2015-005244

PATIENT
  Age: 45 Year
  Sex: Male
  Weight: 77.18 kg

DRUGS (3)
  1. DELATESTRYL [Suspect]
     Active Substance: TESTOSTERONE ENANTHATE
     Indication: ANDROGEN REPLACEMENT THERAPY
     Route: 065
     Dates: start: 200203, end: 20021004
  2. ANDROGEL [Suspect]
     Active Substance: TESTOSTERONE
     Indication: ANDROGEN REPLACEMENT THERAPY
     Route: 065
     Dates: start: 200804
  3. DEPO TESTOSTERONE [Suspect]
     Active Substance: TESTOSTERONE
     Indication: ANDROGEN REPLACEMENT THERAPY
     Route: 030
     Dates: start: 2000

REACTIONS (7)
  - Cardiomegaly [Not Recovered/Not Resolved]
  - Suicide attempt [Unknown]
  - Acute myocardial infarction [Not Recovered/Not Resolved]
  - Chronic obstructive pulmonary disease [Unknown]
  - Deep vein thrombosis [Unknown]
  - Heart rate irregular [Unknown]
  - Cardiovascular disorder [Not Recovered/Not Resolved]

NARRATIVE: CASE EVENT DATE: 20071120
